FAERS Safety Report 24009186 (Version 7)
Quarter: 2024Q4

REPORT INFORMATION
  Report Type: Spontaneous
  Country: US (occurrence: US)
  Receive Date: 20240625
  Receipt Date: 20241101
  Transmission Date: 20250115
  Serious: Yes (Other)
  Sender: BLUEPRINT MEDICINES CORPORATION
  Company Number: US-Blueprint Medicines Corporation-3981

PATIENT
  Age: 58 Year
  Sex: Female

DRUGS (3)
  1. AYVAKIT [Suspect]
     Active Substance: AVAPRITINIB
     Indication: Systemic mastocytosis
     Route: 065
  2. AYVAKIT [Suspect]
     Active Substance: AVAPRITINIB
     Route: 048
     Dates: start: 20240516
  3. AYVAKIT [Suspect]
     Active Substance: AVAPRITINIB
     Route: 048
     Dates: start: 20240516

REACTIONS (24)
  - Syncope [Unknown]
  - Temperature intolerance [Unknown]
  - Platelet count decreased [Recovering/Resolving]
  - Flushing [Recovering/Resolving]
  - Brain fog [Recovering/Resolving]
  - Feeling abnormal [Unknown]
  - Paraesthesia [Unknown]
  - Alopecia [Recovering/Resolving]
  - Constipation [Unknown]
  - Throat clearing [Unknown]
  - Memory impairment [Unknown]
  - Attention deficit hyperactivity disorder [Unknown]
  - Disturbance in attention [Unknown]
  - Platelet count abnormal [Unknown]
  - Blood pressure systolic increased [Unknown]
  - Blood pressure diastolic decreased [Unknown]
  - Dyspnoea [Unknown]
  - Bradykinesia [Unknown]
  - Flatulence [Unknown]
  - Stress [Unknown]
  - Eructation [Unknown]
  - Dermatitis [Unknown]
  - Blood magnesium increased [Unknown]
  - Bone pain [Recovering/Resolving]

NARRATIVE: CASE EVENT DATE: 20240924
